FAERS Safety Report 26133729 (Version 1)
Quarter: 2025Q4

REPORT INFORMATION
  Report Type: Other
  Country: GB (occurrence: GB)
  Receive Date: 20251209
  Receipt Date: 20251209
  Transmission Date: 20260118
  Serious: Yes (Other)
  Sender: IPCA
  Company Number: None

PATIENT

DRUGS (10)
  1. METFORMIN [Suspect]
     Active Substance: METFORMIN HYDROCHLORIDE
     Indication: Diabetes mellitus
     Dosage: 2 DOSAGE FORM, QD(TWO DAILY FOR DIABETIES)
     Route: 065
     Dates: start: 20250401, end: 20250811
  2. CODEINE PHOSPHATE [Concomitant]
     Active Substance: CODEINE PHOSPHATE
     Indication: Product used for unknown indication
     Dosage: AS DIRECTED
     Route: 065
     Dates: start: 20250811
  3. ACETAMINOPHEN [Concomitant]
     Active Substance: ACETAMINOPHEN
     Indication: Product used for unknown indication
     Dosage: AS DIRECTED
     Route: 065
     Dates: start: 20250811
  4. ATORVASTATIN [Concomitant]
     Active Substance: ATORVASTATIN
     Indication: Blood cholesterol
     Dosage: 1 DOSAGE FORM, QD(ONE TABLET DAILY (TO LOWER CHOLESTEROL))
     Route: 065
     Dates: start: 20250811
  5. CITALOPRAM [Concomitant]
     Active Substance: CITALOPRAM
     Indication: Antidepressant therapy
     Dosage: 1 DOSAGE FORM, QD(ONE TABLET DAILY (ANTI-ANXIETY + ANTIDEPRESSANT))
     Route: 065
     Dates: start: 20250811
  6. CLOPIDOGREL [Concomitant]
     Active Substance: CLOPIDOGREL BISULFATE
     Indication: Anticoagulant therapy
     Dosage: 1 DOSAGE FORM, QD(ONE TABLET DAILY (ANTI-CLOTTING))
     Route: 065
     Dates: start: 20250811
  7. ACETYLCYSTEINE [Concomitant]
     Active Substance: ACETYLCYSTEINE
     Indication: Ill-defined disorder
     Dosage: 1 DOSAGE FORM(TAKE ONE EFFERVESCENT TABLET DISSOLVED IN HALF ...)
     Route: 065
     Dates: start: 20250917
  8. LIFT PLUS 360 [Concomitant]
     Indication: Ill-defined disorder
     Dosage: USE AS DIRECTED
     Route: 065
     Dates: start: 20251001
  9. NOVALIFE TRE 1 SOFT CONVEX [Concomitant]
     Indication: Ill-defined disorder
     Dosage: USE AS DIRECTED
     Route: 065
     Dates: start: 20251001
  10. FULCIONEL AR [Concomitant]
     Indication: Ill-defined disorder
     Dosage: USE AS DIRECTED
     Route: 065
     Dates: start: 20251105

REACTIONS (5)
  - Myalgia [Recovered/Resolved]
  - Psychiatric symptom [Unknown]
  - Rash [Unknown]
  - Headache [Unknown]
  - Pain [Unknown]

NARRATIVE: CASE EVENT DATE: 20250401
